FAERS Safety Report 20740195 (Version 1)
Quarter: 2022Q2

REPORT INFORMATION
  Report Type: Spontaneous
  Country: US (occurrence: US)
  Receive Date: 20220422
  Receipt Date: 20220422
  Transmission Date: 20220720
  Serious: No
  Sender: FDA-Public Use
  Company Number: US-PFIZER INC-202101050650

PATIENT
  Age: 64 Year
  Sex: Female
  Weight: 99.79 kg

DRUGS (3)
  1. CELEBREX [Suspect]
     Active Substance: CELECOXIB
     Indication: Osteoarthritis
     Dosage: 200 MG, 1X/DAY
  2. CELEBREX [Suspect]
     Active Substance: CELECOXIB
     Indication: Osteoarthritis
     Dosage: 200 MG
  3. HYDROXYCHLOROQUINE SULFATE [Concomitant]
     Active Substance: HYDROXYCHLOROQUINE SULFATE
     Indication: Arthritis
     Dosage: 200 MG, 2X/DAY

REACTIONS (4)
  - Peripheral swelling [Unknown]
  - Arthralgia [Unknown]
  - Muscle twitching [Unknown]
  - Pain in extremity [Unknown]
